FAERS Safety Report 24926008 (Version 2)
Quarter: 2025Q1

REPORT INFORMATION
  Report Type: Report from Study
  Country: US (occurrence: US)
  Receive Date: 20250205
  Receipt Date: 20250310
  Transmission Date: 20250409
  Serious: Yes (Hospitalization)
  Sender: EXELIXIS
  Company Number: US-EXELIXIS-EXL-2025-004497

PATIENT
  Sex: Male

DRUGS (1)
  1. CABOMETYX [Suspect]
     Active Substance: CABOZANTINIB S-MALATE
     Indication: Renal cancer
     Dosage: 60 MG, QD
     Route: 048

REACTIONS (7)
  - Asthenia [Unknown]
  - Stomatitis [Unknown]
  - Constipation [Unknown]
  - Malaise [Unknown]
  - Oral discomfort [Unknown]
  - Sleep disorder [Unknown]
  - Blood pressure fluctuation [Unknown]
